FAERS Safety Report 8964902 (Version 3)
Quarter: 2013Q2

REPORT INFORMATION
  Report Type: Spontaneous
  Country: US (occurrence: US)
  Receive Date: 20121213
  Receipt Date: 20130419
  Transmission Date: 20140414
  Serious: No
  Sender: FDA-Public Use
  Company Number: US-009507513-1212USA004693

PATIENT
  Sex: Female

DRUGS (4)
  1. JANUVIA [Suspect]
     Indication: DIABETES MELLITUS
     Dosage: 100 MG, ONCE DAILY IN THE MORNING
     Route: 048
     Dates: start: 200701, end: 201008
  2. WELCHOL [Concomitant]
  3. TRIAMTERENE [Concomitant]
  4. PRECOSE [Concomitant]

REACTIONS (5)
  - Bladder disorder [Recovered/Resolved]
  - Dysphagia [Recovered/Resolved]
  - Musculoskeletal chest pain [Recovered/Resolved]
  - Abdominal pain [Recovered/Resolved]
  - Diarrhoea [Recovered/Resolved]
